FAERS Safety Report 8326806-4 (Version None)
Quarter: 2012Q2

REPORT INFORMATION
  Report Type: 
  Country: None (occurrence: None)
  Receive Date: 20120501
  Receipt Date: 20110808
  Transmission Date: 20120825
  Serious: No
  Sender: FDA-Public Use
  Company Number: US-SANOFI-AVENTIS-2011SA054154

PATIENT
  Age: 58 Year
  Sex: Female

DRUGS (2)
  1. APIDRA [Suspect]
     Route: 058
     Dates: start: 20110101
  2. APIDRA [Suspect]
     Dosage: SLIDING SCALE DOSE
     Route: 058
     Dates: start: 20110101

REACTIONS (7)
  - BREAST PAIN [None]
  - DYSPNOEA [None]
  - NAUSEA [None]
  - GENERAL PHYSICAL HEALTH DETERIORATION [None]
  - MALAISE [None]
  - MUSCULAR WEAKNESS [None]
  - BLOOD GLUCOSE INCREASED [None]
